FAERS Safety Report 4672363-3 (Version None)
Quarter: 2005Q2

REPORT INFORMATION
  Report Type: 
  Country: None (occurrence: None)
  Receive Date: 20050520
  Receipt Date: 20050511
  Transmission Date: 20051028
  Serious: Yes (Hospitalization, Other)
  Sender: FDA-Public Use
  Company Number: 2005-05-0456

PATIENT

DRUGS (6)
  1. INTRON A [Suspect]
     Indication: METASTATIC RENAL CELL CARCINOMA
     Dosage: 12 MIU SUBCUTANEOUS
     Route: 058
     Dates: start: 20050425, end: 20050502
  2. INTERLEUKIN-2 INJECTABLE [Suspect]
     Indication: METASTATIC RENAL CELL CARCINOMA
     Dosage: 20 MIU SUBCUTANEOUS
     Route: 058
     Dates: start: 20050427, end: 20050502
  3. PARACETAMOL [Concomitant]
  4. MAXOLON [Concomitant]
  5. ATENOLOL [Concomitant]
  6. ATORVASTATIN CALCIUM [Concomitant]

REACTIONS (6)
  - CONVULSION [None]
  - HYPOTHERMIA [None]
  - LOSS OF CONSCIOUSNESS [None]
  - PAIN [None]
  - PARALYSIS [None]
  - PHOTOPHOBIA [None]
